FAERS Safety Report 11079269 (Version 1)
Quarter: 2015Q2

REPORT INFORMATION
  Report Type: Spontaneous
  Country: CA (occurrence: None)
  Receive Date: 20150428
  Receipt Date: 20150428
  Transmission Date: 20150821
  Serious: Yes (Other)
  Sender: FDA-Public Use
  Company Number: 2015SA042927

PATIENT
  Age: 55 Year
  Sex: Male

DRUGS (2)
  1. METHOTREXATE [Concomitant]
     Active Substance: METHOTREXATE
  2. PLAQUENIL [Suspect]
     Active Substance: HYDROXYCHLOROQUINE SULFATE
     Route: 048
     Dates: start: 201412

REACTIONS (7)
  - Blepharospasm [None]
  - Drug ineffective [None]
  - Ocular hyperaemia [None]
  - Drug intolerance [None]
  - Nasopharyngitis [None]
  - Vision blurred [None]
  - Diarrhoea [None]
